FAERS Safety Report 6756387-8 (Version None)
Quarter: 2010Q2

REPORT INFORMATION
  Report Type: 
  Country: None (occurrence: None)
  Receive Date: 20100604
  Receipt Date: 20100526
  Transmission Date: 20101027
  Serious: Yes (Hospitalization)
  Sender: FDA-Public Use
  Company Number: US-BAYER-201022704NA

PATIENT
  Sex: Female

DRUGS (14)
  1. NEXAVAR [Suspect]
     Indication: HEPATIC NEOPLASM MALIGNANT NON-RESECTABLE
     Route: 048
     Dates: start: 20100415, end: 20100425
  2. OXYCODONE [Concomitant]
  3. ADVAIR DISKUS 100/50 [Concomitant]
     Dosage: 250/50 DAILY
  4. CALCITRIOL [Concomitant]
  5. LISINOPRIL [Concomitant]
     Dates: start: 20091124
  6. PROPRANOLOL [Concomitant]
     Dates: start: 20091124
  7. IMDUR [Concomitant]
  8. LEVOTHYROXINE SODIUM [Concomitant]
  9. PENTASA [Concomitant]
  10. FLUOXETINE [Concomitant]
  11. LACTULOSE [Concomitant]
     Indication: ENCEPHALOPATHY
     Dosage: 4 TEASPOONS
  12. LACTULOSE [Concomitant]
     Dosage: 4 TIMES PER DAY
  13. FERROUS SULFATE TAB [Concomitant]
  14. ACIPHEX [Concomitant]

REACTIONS (1)
  - ENCEPHALOPATHY [None]
